FAERS Safety Report 8129309-5 (Version None)
Quarter: 2012Q1

REPORT INFORMATION
  Report Type: 
  Country: None (occurrence: None)
  Receive Date: 20120210
  Receipt Date: 20120203
  Transmission Date: 20120608
  Serious: Yes (Other)
  Sender: FDA-Public Use
  Company Number: PHHY2012FR008490

PATIENT
  Sex: Female

DRUGS (3)
  1. VINORELBINE [Suspect]
     Indication: CHEMOTHERAPY
     Dosage: 25 MG/M2, AT DAY 1 AND DAY 6, REPEATED EVERY 21 DAYS
  2. RADIATION THERAPY [Concomitant]
     Dosage: 63.8 GY, IN 29 FRACTIONS
  3. FLUOROURACIL [Suspect]
     Indication: CHEMOTHERAPY
     Dosage: 500 MG/M2, FROM DAY 1TO 5 , EVERY 21 DAYS

REACTIONS (2)
  - SKIN TOXICITY [None]
  - GASTROINTESTINAL TOXICITY [None]
